FAERS Safety Report 14831858 (Version 1)
Quarter: 2018Q2

REPORT INFORMATION
  Report Type: Spontaneous
  Country: US (occurrence: US)
  Receive Date: 20180408
  Receipt Date: 20180408
  Transmission Date: 20180711
  Serious: No
  Sender: FDA-Public Use
  Company Number: None

PATIENT
  Age: 36 Year
  Sex: Female

DRUGS (1)
  1. CVS NAPROXEN SDM LG 160S (PER RECEIPT) [Suspect]
     Active Substance: NAPROXEN SODIUM
     Dosage: ?          QUANTITY:160 CAPSULE(S);?
     Dates: start: 20180408

REACTIONS (3)
  - Dry throat [None]
  - Product odour abnormal [None]
  - Nasal disorder [None]

NARRATIVE: CASE EVENT DATE: 20180408
